FAERS Safety Report 5110293-3 (Version None)
Quarter: 2006Q3

REPORT INFORMATION
  Report Type: 
  Country: None (occurrence: None)
  Receive Date: 20060921
  Receipt Date: 20060912
  Transmission Date: 20061208
  Serious: Yes (Other)
  Sender: FDA-Public Use
  Company Number: GR-ROCHE-463026

PATIENT
  Sex: Female

DRUGS (1)
  1. BONIVA [Suspect]
     Indication: OSTEOPOROSIS
     Dosage: FORM REPORTED AS ^FC TABS^ DOSE REPORTED AS ^ 150MG MONTHLY^
     Route: 048
     Dates: start: 20060715

REACTIONS (1)
  - NEPHROLITHIASIS [None]
